FAERS Safety Report 8319126 (Version 4)
Quarter: 2014Q2

REPORT INFORMATION
  Report Type: Spontaneous
  Country: US (occurrence: None)
  Receive Date: 20111220
  Receipt Date: 20140422
  Transmission Date: 20141212
  Serious: Yes (Hospitalization, Other)
  Sender: FDA-Public Use
  Company Number: CIP11003281

PATIENT
  Age: 61 Year
  Sex: Female
  Weight: 68 kg

DRUGS (22)
  1. ACTONEL [Suspect]
     Indication: SENILE OSTEOPOROSIS
     Route: 048
     Dates: start: 200305, end: 200505
  2. ACTONEL [Suspect]
     Indication: OSTEOPOROSIS
     Route: 048
     Dates: start: 200305, end: 200505
  3. FOSAMAX [Suspect]
     Indication: SENILE OSTEOPOROSIS
     Dosage: DOSAGE/FREQUENCY UNKNOWN, ORAL
     Route: 048
  4. FOSAMAX [Suspect]
     Indication: OSTEOPOROSIS
     Dosage: DOSAGE/FREQUENCY UNKNOWN, ORAL
     Route: 048
  5. BONIVA [Suspect]
     Indication: SENILE OSTEOPOROSIS
     Route: 048
     Dates: start: 200707, end: 201105
  6. BONIVA [Suspect]
     Indication: OSTEOPOROSIS
     Route: 048
     Dates: start: 200707, end: 201105
  7. FOSAMAX PLUS D [Suspect]
     Indication: SENILE OSTEOPOROSIS
     Dosage: 70-2800
     Dates: start: 200506, end: 200704
  8. FOSAMAX PLUS D [Suspect]
     Indication: OSTEOPOROSIS
     Dosage: 70-2800
     Dates: start: 200506, end: 200704
  9. PREMARIN (ESTROGENS CONJUGATED) [Concomitant]
  10. ENJUVIA (ESTROGENS CONJUGATED) [Concomitant]
  11. HYDROCHLOROTHIAZIDE [Concomitant]
  12. KLOR-CON (POTASSIUM CHLORIDE) [Concomitant]
  13. LISINOPRIL (LISINOPRIL) [Concomitant]
  14. AFEDITAB (NIFEDIPINE) [Concomitant]
  15. ZOCOR (SIMVASTATIN) [Concomitant]
  16. DUONEB (IPRATROPIUM BROMIDE, SALBUTAMOL SULFATE) [Concomitant]
  17. TIZANIDINE (TIZANIDINE) [Concomitant]
  18. HISTEX? (CHLORPHENAMINE MALEATE, PSEUDOEPHEDRINE HYDROCHLORIDE) [Concomitant]
  19. NAPROXEN (NAPROXEN) [Concomitant]
  20. SULINDAC (SULINDAC) [Concomitant]
  21. CARISOPRODOL (CARISOPRODOL) [Concomitant]
  22. ICAR-C (ASCORBIC ACID, IRON PENTACARBONYL) [Concomitant]

REACTIONS (7)
  - Femur fracture [None]
  - Arthralgia [None]
  - Pain in extremity [None]
  - Cartilage injury [None]
  - Extraskeletal ossification [None]
  - Stress fracture [None]
  - Femur fracture [None]
